FAERS Safety Report 6546758-7 (Version None)
Quarter: 2010Q1

REPORT INFORMATION
  Report Type: 
  Country: None (occurrence: None)
  Receive Date: 20100122
  Receipt Date: 20100121
  Transmission Date: 20100710
  Serious: Yes (Life-Threatening)
  Sender: FDA-Public Use
  Company Number: EC-ROCHE-680590

PATIENT
  Sex: Female

DRUGS (2)
  1. BONIVA [Suspect]
     Indication: OSTEOPOROSIS
     Dosage: DRUG NOT STOPPED DUE TO SAE, LAST DOSE PRIOR TO SAE 19 JAN 2010
     Route: 042
     Dates: start: 20100119
  2. BONIVA [Suspect]
     Route: 042

REACTIONS (2)
  - GENERALISED OEDEMA [None]
  - LIVER INJURY [None]
